FAERS Safety Report 9229687 (Version 1)
Quarter: 2013Q2

REPORT INFORMATION
  Report Type: Spontaneous
  Country: CN (occurrence: CN)
  Receive Date: 20130415
  Receipt Date: 20130415
  Transmission Date: 20140414
  Serious: Yes (Other)
  Sender: FDA-Public Use
  Company Number: CN-PFIZER INC-2013110887

PATIENT
  Age: 56 Year
  Sex: Male

DRUGS (25)
  1. EFEXOR XR [Suspect]
     Indication: BIPOLAR DISORDER
     Dosage: 75 MG, 2X/DAY
  2. EFEXOR XR [Suspect]
     Dosage: 225 MG PER DAY
  3. EFEXOR XR [Suspect]
     Dosage: 225 TO 300MG PER DAY
     Dates: start: 20130218, end: 20130221
  4. EFEXOR XR [Suspect]
     Dosage: 300 MG PER DAY
     Dates: start: 20130228, end: 20130315
  5. EFEXOR XR [Suspect]
     Dosage: 300 MG PER DAY
     Dates: start: 20130319, end: 20130321
  6. EFEXOR XR [Suspect]
     Dosage: UNK
     Dates: start: 20130321, end: 20130402
  7. OLANZAPINE [Suspect]
     Indication: BIPOLAR DISORDER
     Dosage: 10 MG, QN
  8. LAMICTAL [Suspect]
     Indication: BIPOLAR DISORDER
     Dosage: 25 MG, 3X/DAY
  9. LAMICTAL [Suspect]
     Dosage: 62.5 MG, 3X/DAY
  10. LAMICTAL [Suspect]
     Dosage: 150 MG PER DAY
     Dates: start: 20130218, end: 20130221
  11. LAMICTAL [Suspect]
     Dosage: 150 MG TO 200MG PER DAY
     Dates: start: 20130228, end: 20130315
  12. LAMICTAL [Suspect]
     Dosage: 200 MG PER DAY
     Dates: start: 20130319, end: 2013
  13. LAMICTAL [Suspect]
     Dosage: 100 MG, 2X/DAY
     Dates: start: 2013
  14. SEROQUEL [Suspect]
     Indication: BIPOLAR DISORDER
     Dosage: 0.1 G, QN
  15. SEROQUEL [Suspect]
     Dosage: 0.1 G, QN
     Dates: start: 20130218, end: 20130221
  16. SEROQUEL [Suspect]
     Dosage: 0.1 G, QN
     Dates: start: 20130228, end: 20130315
  17. SEROQUEL [Suspect]
     Dosage: 0.05 G, QN
     Dates: start: 20130319
  18. CLONAZEPAM [Suspect]
     Indication: BIPOLAR DISORDER
     Dosage: 1 MG, QN
  19. CLONAZEPAM [Suspect]
     Dosage: 1MG 3 TIMES A DAY TO 1MG ONCE PER NIGHT
     Dates: start: 20130218, end: 20130221
  20. CLONAZEPAM [Suspect]
     Dosage: 1 MG, QN
     Dates: start: 20130228, end: 20130315
  21. CLONAZEPAM [Suspect]
     Dosage: 0.5 MG, QN
     Dates: start: 20130319
  22. PROPRANOLOL [Suspect]
     Indication: BIPOLAR DISORDER
     Dosage: 10 MG, 2X/DAY
     Dates: start: 20130228, end: 20130315
  23. PROPRANOLOL [Suspect]
     Dosage: 10 MG, 2X/DAY
     Dates: start: 20130319
  24. CLOMIPRAMINE [Suspect]
     Indication: BIPOLAR DISORDER
     Dosage: 25 MG TO 50MG PER DAY
     Dates: start: 20130319, end: 20130321
  25. CLOMIPRAMINE [Suspect]
     Dosage: 50 MG PER DAY
     Dates: start: 2013

REACTIONS (7)
  - Metabolic disorder [Unknown]
  - Blood pressure increased [Recovered/Resolved]
  - Bipolar disorder [Unknown]
  - Off label use [Unknown]
  - Alanine aminotransferase increased [Unknown]
  - Aspartate aminotransferase increased [Unknown]
  - Blood triglycerides increased [Unknown]
